FAERS Safety Report 8112790-5 (Version None)
Quarter: 2012Q1

REPORT INFORMATION
  Report Type: 
  Country: None (occurrence: None)
  Receive Date: 20120203
  Receipt Date: 20120124
  Transmission Date: 20120608
  Serious: Yes (Hospitalization, Other)
  Sender: FDA-Public Use
  Company Number: GB-BRISTOL-MYERS SQUIBB COMPANY-16366791

PATIENT
  Age: 67 Year
  Sex: Male

DRUGS (2)
  1. EFAVIRENZ [Suspect]
     Indication: HIV INFECTION
     Dosage: LAST ADMINISTERED DT:18DEC2011.
     Route: 048
     Dates: start: 20111208, end: 20111218
  2. TRUVADA [Suspect]
     Indication: HIV INFECTION
     Dosage: LAST ADMINISTERED:24DEC2011
     Route: 048
     Dates: start: 20111208

REACTIONS (5)
  - GAIT DISTURBANCE [None]
  - FALL [None]
  - SLEEP DISORDER [None]
  - LACERATION [None]
  - DIZZINESS [None]
